FAERS Safety Report 17598097 (Version 1)
Quarter: 2020Q1

REPORT INFORMATION
  Report Type: Spontaneous
  Country: QA (occurrence: QA)
  Receive Date: 20200330
  Receipt Date: 20200330
  Transmission Date: 20200409
  Serious: Yes (Other)
  Sender: FDA-Public Use
  Company Number: QA-CHEPLA-C20201074

PATIENT
  Age: 6 Year
  Sex: Male

DRUGS (25)
  1. CIPROFLOXACIN. [Suspect]
     Active Substance: CIPROFLOXACIN
  2. AMIKACIN. [Suspect]
     Active Substance: AMIKACIN
  3. ESOMEPRAZOLE. [Suspect]
     Active Substance: ESOMEPRAZOLE MAGNESIUM
     Indication: GASTROINTESTINAL HAEMORRHAGE
     Dosage: INFUSION
  4. OCTREOTIDE. [Suspect]
     Active Substance: OCTREOTIDE
     Indication: GASTROINTESTINAL HAEMORRHAGE
  5. AMPHOTERICIN B. [Suspect]
     Active Substance: AMPHOTERICIN B
  6. VANCOMYCIN [Suspect]
     Active Substance: VANCOMYCIN
     Indication: BACTERIAL INFECTION
  7. MEROPENEM. [Suspect]
     Active Substance: MEROPENEM
  8. GENTAMYCIN [Suspect]
     Active Substance: GENTAMICIN
  9. TRIMETHOPRIM/SULFAMETHOXAZOLE [Suspect]
     Active Substance: SULFAMETHOXAZOLE\TRIMETHOPRIM
  10. CYCLOSPORINE. [Suspect]
     Active Substance: CYCLOSPORINE
     Indication: HAEMOPHAGOCYTIC LYMPHOHISTIOCYTOSIS
     Dates: start: 201902
  11. DAPTOMYCIN. [Suspect]
     Active Substance: DAPTOMYCIN
  12. CIDOFOVIR. [Suspect]
     Active Substance: CIDOFOVIR
     Indication: CYTOMEGALOVIRUS VIRAEMIA
  13. COLISTIN [Suspect]
     Active Substance: COLISTIN
     Indication: ESCHERICHIA INFECTION
  14. LEVOFLOXACIN. [Suspect]
     Active Substance: LEVOFLOXACIN
     Indication: BACTERIAL INFECTION
     Route: 042
  15. FLUCONAZOLE. [Suspect]
     Active Substance: FLUCONAZOLE
  16. ACYCLOVIR. [Suspect]
     Active Substance: ACYCLOVIR
  17. DEXAMETHASONE. [Suspect]
     Active Substance: DEXAMETHASONE
     Indication: HAEMOPHAGOCYTIC LYMPHOHISTIOCYTOSIS
     Dates: start: 201902
  18. CEFEPIME [Suspect]
     Active Substance: CEFEPIME HYDROCHLORIDE
  19. GANCICLOVIR. [Suspect]
     Active Substance: GANCICLOVIR
     Indication: CYTOMEGALOVIRUS VIRAEMIA
     Route: 065
     Dates: start: 201903
  20. CASPOFUNGIN [Suspect]
     Active Substance: CASPOFUNGIN
  21. VALGANCYCLOVIR [Suspect]
     Active Substance: VALGANCICLOVIR
     Indication: CYTOMEGALOVIRUS VIRAEMIA
     Dosage: FOR ANOTHER 3 WEEKS AFTER IV GANCICLOVIR
     Route: 048
  22. FOSCARNET [Suspect]
     Active Substance: FOSCARNET
     Indication: CYTOMEGALOVIRUS VIRAEMIA
  23. FOSCARNET [Suspect]
     Active Substance: FOSCARNET
     Indication: CYTOMEGALOVIRUS VIRAEMIA
     Dates: start: 201903
  24. CEFTRIAXONE. [Suspect]
     Active Substance: CEFTRIAXONE
  25. TIGECYCLIN [Suspect]
     Active Substance: TIGECYCLINE

REACTIONS (9)
  - Drug resistance [Not Recovered/Not Resolved]
  - Gastrointestinal haemorrhage [Not Recovered/Not Resolved]
  - Product use issue [Recovered/Resolved]
  - Hypotension [Not Recovered/Not Resolved]
  - Shock [Unknown]
  - Pulmonary haemorrhage [Not Recovered/Not Resolved]
  - Acute kidney injury [Not Recovered/Not Resolved]
  - Haemodynamic instability [Unknown]
  - Microangiopathic haemolytic anaemia [Unknown]

NARRATIVE: CASE EVENT DATE: 2019
